FAERS Safety Report 18605911 (Version 1)
Quarter: 2020Q4

REPORT INFORMATION
  Report Type: Spontaneous
  Country: GB (occurrence: GB)
  Receive Date: 20201211
  Receipt Date: 20201211
  Transmission Date: 20210114
  Serious: Yes (Hospitalization, Other)
  Sender: FDA-Public Use
  Company Number: GB-COLLEGIUM PHARMACEUTICAL, INC.-2020CGM01066

PATIENT
  Age: 57 Year
  Sex: Female

DRUGS (1)
  1. OXYCODONE [Suspect]
     Active Substance: OXYCODONE
     Dosage: 14 TABLETS
     Route: 065

REACTIONS (2)
  - Overdose [Recovered/Resolved]
  - Leukoencephalopathy [Recovering/Resolving]
